FAERS Safety Report 11294414 (Version 1)
Quarter: 2015Q3

REPORT INFORMATION
  Report Type: Spontaneous
  Country: US (occurrence: US)
  Receive Date: 20150722
  Receipt Date: 20150722
  Transmission Date: 20151125
  Serious: Yes (Hospitalization, Other)
  Sender: FDA-Public Use
  Company Number: US-ELI_LILLY_AND_COMPANY-US200806001612

PATIENT
  Age: 62 Year
  Sex: Female
  Weight: 129.25 kg

DRUGS (14)
  1. CLONAZEPAM. [Concomitant]
     Active Substance: CLONAZEPAM
  2. ACTOS [Concomitant]
     Active Substance: PIOGLITAZONE HYDROCHLORIDE
  3. ASA [Concomitant]
     Active Substance: ASPIRIN
  4. METHOCARBAMOL. [Concomitant]
     Active Substance: METHOCARBAMOL
  5. PROBENECID. [Concomitant]
     Active Substance: PROBENECID
  6. TRICOR [Concomitant]
     Active Substance: FENOFIBRATE
  7. NIACIN. [Concomitant]
     Active Substance: NIACIN
  8. CRESTOR [Concomitant]
     Active Substance: ROSUVASTATIN CALCIUM
  9. INDOMETHACIN. [Concomitant]
     Active Substance: INDOMETHACIN
  10. NIFEDIPINE. [Concomitant]
     Active Substance: NIFEDIPINE
  11. NAPROXEN. [Concomitant]
     Active Substance: NAPROXEN
  12. EVISTA [Suspect]
     Active Substance: RALOXIFENE HYDROCHLORIDE
     Indication: OSTEOPENIA
     Dosage: 60 MG, DAILY (1/D)
     Dates: start: 20060324
  13. LASIX [Concomitant]
     Active Substance: FUROSEMIDE
  14. LEVOTHYROXINE. [Concomitant]
     Active Substance: LEVOTHYROXINE

REACTIONS (2)
  - Pulmonary embolism [Recovering/Resolving]
  - Deep vein thrombosis [Recovering/Resolving]

NARRATIVE: CASE EVENT DATE: 200603
